FAERS Safety Report 24679360 (Version 1)
Quarter: 2024Q4

REPORT INFORMATION
  Report Type: Spontaneous
  Country: CN (occurrence: CN)
  Receive Date: 20241129
  Receipt Date: 20241129
  Transmission Date: 20250114
  Serious: Yes (Hospitalization)
  Sender: ACCORD
  Company Number: None

PATIENT
  Age: 42 Year
  Sex: Female
  Weight: 42 kg

DRUGS (3)
  1. TRASTUZUMAB [Suspect]
     Active Substance: TRASTUZUMAB
     Indication: Breast cancer
     Dosage: 150 MILLIGRAM
     Route: 042
     Dates: start: 20241002, end: 20241015
  2. LETROZOLE [Concomitant]
     Active Substance: LETROZOLE
     Dosage: UNK
     Route: 048
     Dates: start: 20240804
  3. GOSERELIN ACETATE [Concomitant]
     Active Substance: GOSERELIN ACETATE
     Dosage: UNK
     Route: 048
     Dates: start: 20240804

REACTIONS (1)
  - Myelosuppression [Recovering/Resolving]

NARRATIVE: CASE EVENT DATE: 20241015
